FAERS Safety Report 8806022 (Version 1)
Quarter: 2012Q4

REPORT INFORMATION
  Report Type: Spontaneous
  Country: US (occurrence: None)
  Receive Date: 20120919
  Receipt Date: 20120919
  Transmission Date: 20130627
  Serious: Yes (Other)
  Sender: FDA-Public Use
  Company Number: None

PATIENT
  Age: 60 Year
  Sex: Female

DRUGS (1)
  1. GILENYA [Suspect]
     Route: 048
     Dates: start: 20111118

REACTIONS (5)
  - Vision blurred [None]
  - Dizziness [None]
  - Fall [None]
  - Eye pain [None]
  - Abdominal pain upper [None]
